FAERS Safety Report 13441134 (Version 1)
Quarter: 2017Q2

REPORT INFORMATION
  Report Type: Spontaneous
  Country: US (occurrence: US)
  Receive Date: 20170413
  Receipt Date: 20170413
  Transmission Date: 20170830
  Serious: Yes (Other)
  Sender: FDA-Public Use
  Company Number: US-TEVA-757506ACC

PATIENT
  Age: 37 Year
  Sex: Female
  Weight: 52.21 kg

DRUGS (1)
  1. PARAGARD T 380A [Suspect]
     Active Substance: COPPER
     Indication: CONTRACEPTION
     Dates: start: 201611

REACTIONS (17)
  - Hypomenorrhoea [Unknown]
  - Vaginal haemorrhage [Unknown]
  - Angiomyolipoma [Not Recovered/Not Resolved]
  - Cyst [Not Recovered/Not Resolved]
  - Chest pain [Not Recovered/Not Resolved]
  - Urinary tract infection [Unknown]
  - Micturition urgency [Unknown]
  - Procedural pain [Recovered/Resolved]
  - Menorrhagia [Unknown]
  - Abdominal distension [Recovering/Resolving]
  - Vaginal discharge [Unknown]
  - Feeling abnormal [Unknown]
  - Menstruation irregular [Unknown]
  - Muscle spasms [Unknown]
  - Pleurisy [Not Recovered/Not Resolved]
  - Anaemia [Unknown]
  - Discomfort [Recovered/Resolved]

NARRATIVE: CASE EVENT DATE: 201611
